FAERS Safety Report 6838748-1 (Version None)
Quarter: 2010Q3

REPORT INFORMATION
  Report Type: 
  Country: None (occurrence: None)
  Receive Date: 20100713
  Receipt Date: 20070620
  Transmission Date: 20110219
  Serious: No
  Sender: FDA-Public Use
  Company Number: US-PFIZER INC-2007043378

PATIENT
  Sex: Female
  Weight: 62.6 kg

DRUGS (5)
  1. CHANTIX [Suspect]
     Indication: SMOKING CESSATION THERAPY
     Dates: start: 20070301
  2. XANAX [Interacting]
     Indication: ANXIETY
  3. LIPITOR [Concomitant]
  4. PROTONIX [Concomitant]
     Indication: GASTROOESOPHAGEAL REFLUX DISEASE
  5. ATENOLOL [Concomitant]
     Indication: HYPERTENSION

REACTIONS (4)
  - ABNORMAL DREAMS [None]
  - DRUG INTERACTION [None]
  - MALAISE [None]
  - NAUSEA [None]
